FAERS Safety Report 10899256 (Version 2)
Quarter: 2015Q1

REPORT INFORMATION
  Report Type: Report from Study
  Country: IL (occurrence: IL)
  Receive Date: 20150309
  Receipt Date: 20150316
  Transmission Date: 20150721
  Serious: Yes (Death, Hospitalization)
  Sender: FDA-Public Use
  Company Number: IL-PFIZER INC-2015080050

PATIENT
  Age: 41 Year
  Sex: Female

DRUGS (2)
  1. PALBOCICLIB [Suspect]
     Active Substance: PALBOCICLIB
     Indication: BREAST CANCER METASTATIC
     Dosage: 125 MG, DAILY
     Route: 048
     Dates: start: 20150225
  2. LETROZOLE. [Concomitant]
     Active Substance: LETROZOLE
     Dosage: 2.5 MG, 1X/DAY

REACTIONS (8)
  - Acute hepatic failure [Fatal]
  - Disease progression [Fatal]
  - Sepsis [Fatal]
  - Malaise [Unknown]
  - Abdominal pain upper [Unknown]
  - Ascites [Unknown]
  - Breast cancer metastatic [Fatal]
  - Jaundice [Unknown]
